FAERS Safety Report 16030375 (Version 1)
Quarter: 2019Q2

REPORT INFORMATION
  Report Type: Spontaneous
  Country: US (occurrence: US)
  Receive Date: 20190304
  Receipt Date: 20190304
  Transmission Date: 20190711
  Serious: Yes (Disabling)
  Sender: FDA-Public Use
  Company Number: None

PATIENT
  Age: 53 Year
  Sex: Female
  Weight: 54 kg

DRUGS (6)
  1. TAURINE [Concomitant]
     Active Substance: TAURINE
  2. VIT D [Concomitant]
     Active Substance: VITAMIN D NOS
  3. DALFAMPRIDINE. [Suspect]
     Active Substance: DALFAMPRIDINE
     Indication: MULTIPLE SCLEROSIS
     Dosage: ?          OTHER ROUTE:BY MOUTH?
     Dates: start: 20190101
  4. METHYL FOLATE [Concomitant]
  5. MVI/MINERAL [Concomitant]
  6. MAGNESIUM OXIDE. [Concomitant]
     Active Substance: MAGNESIUM OXIDE

REACTIONS (4)
  - Product substitution issue [None]
  - Balance disorder [None]
  - Gait disturbance [None]
  - Condition aggravated [None]

NARRATIVE: CASE EVENT DATE: 20190101
